FAERS Safety Report 22940675 (Version 2)
Quarter: 2023Q4

REPORT INFORMATION
  Report Type: Spontaneous
  Country: US (occurrence: US)
  Receive Date: 20230913
  Receipt Date: 20231005
  Transmission Date: 20240110
  Serious: Yes (Hospitalization)
  Sender: FDA-Public Use
  Company Number: US-Vifor (International) Inc.-VIT-2023-06799

PATIENT
  Age: 29 Year
  Sex: Female
  Weight: 80 kg

DRUGS (2)
  1. MIRCERA [Suspect]
     Active Substance: METHOXY POLYETHYLENE GLYCOL-EPOETIN BETA
     Indication: Anaemia
     Dosage: MIRCERA WAS ADMINISTERED AT 16:33 AND TREATMENT WAS ENDED AT 16:44)
     Route: 042
     Dates: start: 20230830, end: 20230830
  2. HEPARIN [Concomitant]
     Active Substance: HEPARIN SODIUM

REACTIONS (5)
  - Malaise [Recovered/Resolved]
  - Dyspnoea [Recovered/Resolved]
  - Unresponsive to stimuli [Recovered/Resolved]
  - Vomiting projectile [Recovered/Resolved]
  - Loss of consciousness [Recovered/Resolved]

NARRATIVE: CASE EVENT DATE: 20230830
